FAERS Safety Report 23565960 (Version 1)
Quarter: 2024Q1

REPORT INFORMATION
  Report Type: Spontaneous
  Country: US (occurrence: None)
  Receive Date: 20240226
  Receipt Date: 20240226
  Transmission Date: 20240409
  Serious: Yes (Hospitalization)
  Sender: FDA-Public Use
  Company Number: None

PATIENT
  Sex: Female

DRUGS (6)
  1. DOCETAXEL [Suspect]
     Active Substance: DOCETAXEL\DOCETAXEL ANHYDROUS
     Indication: Breast cancer female
     Dosage: 150MG ON DAY 1 EVERY 21 DAYS IV?
     Route: 042
     Dates: start: 202308
  2. DEXAMETHASONE [Suspect]
     Active Substance: DEXAMETHASONE
     Indication: Breast cancer female
     Dosage: 10MG ON DAY 1 EVERY 21 DAYS IV
     Route: 042
     Dates: start: 202308
  3. GRANISETRON HCL SDV [Concomitant]
  4. DIPHENHYDRAMINE SDV (1ML/VL) [Concomitant]
  5. PHESGO SDV (10ML/VL) [Concomitant]
  6. FAMOTIDINE SDV (2ML/VL) [Concomitant]

REACTIONS (1)
  - Hospitalisation [None]
